FAERS Safety Report 6965992-5 (Version None)
Quarter: 2010Q3

REPORT INFORMATION
  Report Type: 
  Country: None (occurrence: None)
  Receive Date: 20100903
  Receipt Date: 20100824
  Transmission Date: 20110219
  Serious: Yes (Other)
  Sender: FDA-Public Use
  Company Number: US-PFIZER INC-2010097570

PATIENT
  Sex: Female
  Weight: 65.76 kg

DRUGS (14)
  1. CHANTIX [Suspect]
     Indication: SMOKING CESSATION THERAPY
     Dosage: 0.5 MG, 1X/DAY
     Route: 048
     Dates: start: 20100601, end: 20100101
  2. CHANTIX [Suspect]
     Dosage: UNK
     Route: 048
     Dates: start: 20100101
  3. LEVOXYL [Concomitant]
     Dosage: UNK
  4. SPORANOX [Concomitant]
     Dosage: UNK
  5. WARFARIN [Concomitant]
     Dosage: UNK
  6. BACLOFEN [Concomitant]
     Dosage: UNK
  7. AMITIZA [Concomitant]
     Dosage: UNK
  8. LYRICA [Concomitant]
     Dosage: UNK
  9. CYMBALTA [Concomitant]
     Dosage: UNK
  10. DESOXIMETASONE [Concomitant]
     Dosage: UNK
  11. VOLTAREN [Concomitant]
     Indication: MUSCULOSKELETAL DISCOMFORT
     Dosage: UNK
  12. ESTRADIOL [Concomitant]
     Dosage: UNK
  13. BENICAR [Concomitant]
     Dosage: UNK
  14. SODIUM SULFACETAMIDE/SULFUR [Concomitant]
     Dosage: UNK

REACTIONS (1)
  - BLOOD GLUCOSE INCREASED [None]
